FAERS Safety Report 10149791 (Version 2)
Quarter: 2014Q2

REPORT INFORMATION
  Report Type: Spontaneous
  Country: GB (occurrence: None)
  Receive Date: 20140430
  Receipt Date: 20140515
  Transmission Date: 20141212
  Serious: Yes (Disabling, Congenital Anomaly, Other)
  Sender: FDA-Public Use
  Company Number: AUR-APL-2014-05059

PATIENT
  Sex: Female

DRUGS (1)
  1. FLUOXETINE (FLUOXETINE) [Suspect]
     Indication: DEPRESSION
     Route: 064
     Dates: start: 201101

REACTIONS (6)
  - Caesarean section [None]
  - Maternal drugs affecting foetus [None]
  - Dysmorphism [None]
  - Autism [None]
  - Developmental delay [None]
  - Congenital anomaly [None]
